FAERS Safety Report 26174015 (Version 1)
Quarter: 2025Q4

REPORT INFORMATION
  Report Type: Spontaneous
  Country: US (occurrence: US)
  Receive Date: 20251218
  Receipt Date: 20251218
  Transmission Date: 20260118
  Serious: Yes (Other)
  Sender: ROCHE
  Company Number: US-ROCHE-10000458687

PATIENT
  Sex: Male

DRUGS (2)
  1. XOLAIR PFS [Suspect]
     Active Substance: OMALIZUMAB
     Indication: Food allergy
     Dosage: FORM STRENGTH:75 MG /05 ML
     Route: 058
     Dates: start: 202509
  2. XOLAIR PFS [Suspect]
     Active Substance: OMALIZUMAB
     Dosage: FORM STRENGTH:300 MG /2 ML
     Route: 058
     Dates: start: 202509

REACTIONS (2)
  - Hypersensitivity [Unknown]
  - Anaphylactic reaction [Unknown]
